FAERS Safety Report 5472377-X (Version None)
Quarter: 2007Q3

REPORT INFORMATION
  Report Type: 
  Country: None (occurrence: None)
  Receive Date: 20070927
  Receipt Date: 20070917
  Transmission Date: 20080115
  Serious: Yes (Death)
  Sender: FDA-Public Use
  Company Number: 17483

PATIENT
  Age: 54 Year

DRUGS (16)
  1. CYTARABINE [Suspect]
     Indication: MANTLE CELL LYMPHOMA
     Dosage: 3 G/M2 PER_CYCLE
  2. METHOTREXATE [Suspect]
     Indication: MANTLE CELL LYMPHOMA
     Dosage: 200 MG/M2 PER_CYCLE IV
     Route: 042
  3. METHOTREXATE [Suspect]
     Indication: MANTLE CELL LYMPHOMA
     Dosage: 800 MG/M2, PER_CYCLE IV
     Route: 042
  4. VINCRISTINE [Suspect]
     Indication: MANTLE CELL LYMPHOMA
     Dosage: 1.4 MG/M2 PER_CYCLE IV
     Route: 042
  5. RITUXIMAB [Suspect]
     Indication: MANTLE CELL LYMPHOMA
     Dosage: 375 MG/M2, PER_CYCLE
  6. CYCLOPHOSPHAMIDE [Suspect]
     Indication: MANTLE CELL LYMPHOMA
     Dosage: 300 MG/M2 PER_CYCLE IV
     Route: 042
  7. DOXORUBUCIN [Suspect]
     Indication: MANTLE CELL LYMPHOMA
     Dosage: 16.7 MG/M2 PER_CYCLE IV
     Route: 042
  8. DEXAMETHASONE 0.5MG TAB [Suspect]
     Indication: MANTLE CELL LYMPHOMA
     Dosage: 40 MG PER_CYCLE
  9. MESNA [Suspect]
     Indication: MANTLE CELL LYMPHOMA
     Dosage: 600 MG/M2 DAILY IV
     Route: 042
  10. NEUPOGEN [Concomitant]
  11. VALACYCLOVIR [Concomitant]
  12. FLUCONAZOLE [Concomitant]
  13. LEVOFLOXACIN [Concomitant]
  14. CIPROFLOXACIN [Concomitant]
  15. PREDNISOLONE 1% [Concomitant]
  16. FOLINIC ACID [Concomitant]

REACTIONS (1)
  - MYELODYSPLASTIC SYNDROME [None]
